FAERS Safety Report 23978566 (Version 1)
Quarter: 2024Q2

REPORT INFORMATION
  Report Type: Spontaneous
  Country: CZ (occurrence: CZ)
  Receive Date: 20240614
  Receipt Date: 20240614
  Transmission Date: 20240716
  Serious: Yes (Hospitalization, Other)
  Sender: FDA-Public Use
  Company Number: CZ-GILEAD-2024-0677292

PATIENT
  Age: 64 Year
  Sex: Female

DRUGS (1)
  1. YESCARTA [Suspect]
     Active Substance: AXICABTAGENE CILOLEUCEL
     Indication: Diffuse large B-cell lymphoma
     Dosage: UNK
     Route: 065
     Dates: start: 20240312, end: 20240312

REACTIONS (13)
  - Mitral valve incompetence [Unknown]
  - Ischaemia [Unknown]
  - Troponin increased [Unknown]
  - Electrocardiogram change [Unknown]
  - Lung disorder [Unknown]
  - Nasal disorder [Unknown]
  - Sinus disorder [Unknown]
  - Ejection fraction decreased [Unknown]
  - Supraventricular tachycardia [Unknown]
  - Pulmonary oedema [Unknown]
  - Pleural effusion [Unknown]
  - Dyspnoea [Unknown]
  - Cytokine release syndrome [Unknown]

NARRATIVE: CASE EVENT DATE: 20240101
